FAERS Safety Report 18817296 (Version 1)
Quarter: 2021Q1

REPORT INFORMATION
  Report Type: Report from Study
  Country: CO (occurrence: CO)
  Receive Date: 20210201
  Receipt Date: 20210201
  Transmission Date: 20210419
  Serious: Yes (Hospitalization)
  Sender: FDA-Public Use
  Company Number: NVSC2020CO348822

PATIENT
  Age: 20 Year
  Sex: Female
  Weight: 64 kg

DRUGS (6)
  1. CYCLOSPORINE. [Suspect]
     Active Substance: CYCLOSPORINE
     Indication: PROPHYLAXIS AGAINST TRANSPLANT REJECTION
     Dosage: UNK UNK, QD
     Route: 048
     Dates: start: 202008
  2. ACYCLOVIR. [Concomitant]
     Active Substance: ACYCLOVIR
     Indication: INFECTION PROPHYLAXIS
     Dosage: 800 MG, Q12H
     Route: 048
     Dates: start: 202011
  3. FLUCONAZOLE. [Concomitant]
     Active Substance: FLUCONAZOLE
     Indication: INFECTION PROPHYLAXIS
     Dosage: 200 MG, Q12H
     Route: 048
     Dates: start: 202011
  4. TRIMETHOPRIM SULFA [Concomitant]
     Active Substance: TRIMETHOPRIM SULFATE
     Indication: PRODUCT USED FOR UNKNOWN INDICATION
     Dosage: 800 MG, QD (WEDNESDAY AND FRIDAY) (A MONTH AGO)
     Route: 048
  5. REVOLADE [Suspect]
     Active Substance: ELTROMBOPAG OLAMINE
     Indication: APLASTIC ANAEMIA
     Dosage: 150 MG, QD
     Route: 048
     Dates: start: 202008, end: 202010
  6. CIPROFLOXACINE [Concomitant]
     Active Substance: CIPROFLOXACIN
     Indication: INFECTION PROPHYLAXIS
     Dosage: 500 MG, Q12H
     Route: 048
     Dates: start: 202011

REACTIONS (12)
  - Platelet count decreased [Unknown]
  - White blood cell count decreased [Unknown]
  - Nausea [Not Recovered/Not Resolved]
  - Haemoglobin decreased [Unknown]
  - Pyrexia [Unknown]
  - Transplantation complication [Unknown]
  - Vomiting [Unknown]
  - Decreased appetite [Recovered/Resolved]
  - Asthenia [Unknown]
  - Dysstasia [Unknown]
  - Bone pain [Unknown]
  - Dizziness [Unknown]

NARRATIVE: CASE EVENT DATE: 20201206
